FAERS Safety Report 11320824 (Version 2)
Quarter: 2016Q3

REPORT INFORMATION
  Report Type: Spontaneous
  Country: US (occurrence: US)
  Receive Date: 20150729
  Receipt Date: 20160729
  Transmission Date: 20161109
  Serious: Yes (Other)
  Sender: FDA-Public Use
  Company Number: US-MYLANLABS-2014M1002088

PATIENT

DRUGS (1)
  1. CLONIDINE HYDROCHLORIDE TABLETS USP [Suspect]
     Active Substance: CLONIDINE HYDROCHLORIDE
     Dosage: 0.4 MG, TID
     Route: 048
     Dates: start: 20140804

REACTIONS (1)
  - Coeliac disease [Not Recovered/Not Resolved]

NARRATIVE: CASE EVENT DATE: 20140805
